FAERS Safety Report 21256380 (Version 1)
Quarter: 2022Q3

REPORT INFORMATION
  Report Type: Spontaneous
  Country: FR (occurrence: FR)
  Receive Date: 20220825
  Receipt Date: 20220825
  Transmission Date: 20221027
  Serious: Yes (Other)
  Sender: FDA-Public Use
  Company Number: FR-SUN PHARMACEUTICAL INDUSTRIES LTD-2022RR-352298

PATIENT
  Age: 21 Year
  Sex: Female
  Weight: 51 kg

DRUGS (3)
  1. IBUPROFEN [Suspect]
     Active Substance: IBUPROFEN
     Indication: Pain
     Dosage: 1200 MILLIGRAM, DAILY, 1 CP 400MG  3X/D
     Route: 048
     Dates: start: 20220507, end: 20220508
  2. DICLOFENAC [Suspect]
     Active Substance: DICLOFENAC
     Indication: Product used for unknown indication
     Dosage: 2 DOSAGE FORM, DAILY, APPLICATION 2X/D
     Route: 003
     Dates: start: 20220507, end: 20220509
  3. ETHINYL ESTRADIOL\LEVONORGESTREL [Concomitant]
     Active Substance: ETHINYL ESTRADIOL\LEVONORGESTREL
     Indication: Oral contraception
     Dosage: UNK
     Route: 065

REACTIONS (1)
  - Vaginal ulceration [Recovered/Resolved]

NARRATIVE: CASE EVENT DATE: 20220508
